FAERS Safety Report 5706163-X (Version None)
Quarter: 2008Q2

REPORT INFORMATION
  Report Type: 
  Country: None (occurrence: None)
  Receive Date: 20080415
  Receipt Date: 20080408
  Transmission Date: 20081010
  Serious: Yes (Other)
  Sender: FDA-Public Use
  Company Number: GB-PFIZER INC-2008028555

PATIENT
  Age: 55 Year
  Sex: Male

DRUGS (6)
  1. PREDNISOLONE [Suspect]
     Indication: DERMATITIS ATOPIC
     Route: 048
     Dates: start: 20040101, end: 20060301
  2. CYCLOSPORINE [Suspect]
     Dates: start: 20050101, end: 20050101
  3. PYRIDOXINE [Concomitant]
     Indication: DERMATITIS ATOPIC
  4. AZATHIOPRINE [Concomitant]
     Indication: DERMATITIS ATOPIC
  5. CYANOCOBALAMIN [Concomitant]
     Indication: DERMATITIS ATOPIC
  6. THIAMINE [Concomitant]
     Indication: DERMATITIS ATOPIC

REACTIONS (2)
  - BONE MARROW OEDEMA SYNDROME [None]
  - OSTEOPENIA [None]
